FAERS Safety Report 16458099 (Version 1)
Quarter: 2019Q2

REPORT INFORMATION
  Report Type: Spontaneous
  Country: US (occurrence: US)
  Receive Date: 20190620
  Receipt Date: 20190620
  Transmission Date: 20190711
  Serious: No
  Sender: FDA-Public Use
  Company Number: US-ZYDUS-035793

PATIENT
  Sex: Female

DRUGS (1)
  1. OSELTAMIVIR/OSELTAMIVIR PHOSPHATE [Suspect]
     Active Substance: OSELTAMIVIR PHOSPHATE
     Indication: INFLUENZA
     Route: 048
     Dates: start: 20190402, end: 20190403

REACTIONS (4)
  - Pharyngeal swelling [Recovered/Resolved]
  - Hallucination [Recovered/Resolved]
  - Oral pruritus [Recovered/Resolved]
  - Vision blurred [Recovered/Resolved]

NARRATIVE: CASE EVENT DATE: 20190403
